FAERS Safety Report 8344244-5 (Version None)
Quarter: 2012Q2

REPORT INFORMATION
  Report Type: 
  Country: None (occurrence: None)
  Receive Date: 20120402
  Receipt Date: 20120113
  Transmission Date: 20120825
  Serious: Yes (Other)
  Sender: FDA-Public Use
  Company Number: 317622USA

PATIENT
  Age: 54 Year
  Sex: Female
  Weight: 89.8122 kg

DRUGS (2)
  1. VENLAFAXINE [Suspect]
     Indication: DEPRESSION
     Dosage: 450 MG (150 MG, 3 IN 1 D), ORAL
     Route: 048
     Dates: start: 20111001, end: 20111101
  2. VICODIN [Suspect]
     Indication: BACK PAIN

REACTIONS (3)
  - DISTURBANCE IN ATTENTION [None]
  - AMNESIA [None]
  - SLEEP DISORDER [None]
